FAERS Safety Report 5876803-3 (Version None)
Quarter: 2008Q3

REPORT INFORMATION
  Report Type: 
  Country: None (occurrence: None)
  Receive Date: 20080908
  Receipt Date: 20080908
  Transmission Date: 20090109
  Serious: Yes (Death)
  Sender: FDA-Public Use
  Company Number: None

PATIENT
  Age: 50 Year
  Sex: Female
  Weight: 87.5442 kg

DRUGS (1)
  1. YASMIN [Suspect]
     Indication: MENORRHAGIA
     Dosage: 2 DAILY FOR 5 DAYS THEN 1 DAILY PO
     Route: 048
     Dates: start: 20070325, end: 20080325

REACTIONS (5)
  - HAEMORRHAGE [None]
  - MUSCLE DISORDER [None]
  - OFF LABEL USE [None]
  - PAIN [None]
  - PAIN IN EXTREMITY [None]
